FAERS Safety Report 6389648-5 (Version None)
Quarter: 2009Q4

REPORT INFORMATION
  Report Type: 
  Country: None (occurrence: None)
  Receive Date: 20091006
  Receipt Date: 20090930
  Transmission Date: 20100525
  Serious: Yes (Death, Hospitalization)
  Sender: FDA-Public Use
  Company Number: PHHY2009SE25565

PATIENT
  Sex: Male

DRUGS (5)
  1. GLEEVEC [Suspect]
     Indication: CHRONIC MYELOID LEUKAEMIA
     Dosage: 400 MG, UNK
     Dates: start: 20060222, end: 20090712
  2. ENALAPRIL MALEATE [Concomitant]
  3. ALLOPURINOL [Concomitant]
     Dosage: 300 MG/DAY
  4. TROMBYL [Concomitant]
     Dosage: 75 MG/DAY
  5. ATENOLOL [Concomitant]
     Dosage: 50 MG/DAY

REACTIONS (2)
  - METASTASES TO LUNG [None]
  - THYROID CANCER METASTATIC [None]
